FAERS Safety Report 19695489 (Version 1)
Quarter: 2021Q3

REPORT INFORMATION
  Report Type: Spontaneous
  Country: NO (occurrence: NO)
  Receive Date: 20210813
  Receipt Date: 20210813
  Transmission Date: 20211014
  Serious: Yes (Death, Hospitalization)
  Sender: FDA-Public Use
  Company Number: NO-STRIDES ARCOLAB LIMITED-2021SP026304

PATIENT
  Sex: Female

DRUGS (1)
  1. AMLODIPINE [Suspect]
     Active Substance: AMLODIPINE BESYLATE
     Indication: HYPERTENSION
     Dosage: UNK
     Route: 065

REACTIONS (5)
  - Pneumonia aspiration [Fatal]
  - Blood glucose increased [Not Recovered/Not Resolved]
  - Toxicity to various agents [Fatal]
  - Overdose [Fatal]
  - Blood pressure decreased [Not Recovered/Not Resolved]
